FAERS Safety Report 7282340-4 (Version None)
Quarter: 2011Q1

REPORT INFORMATION
  Report Type: 
  Country: None (occurrence: None)
  Receive Date: 20110209
  Receipt Date: 20110201
  Transmission Date: 20110831
  Serious: Yes (Other)
  Sender: FDA-Public Use
  Company Number: US-TEVA-265527USA

PATIENT
  Sex: Female

DRUGS (5)
  1. TIOTROPIUM BROMIDE [Suspect]
  2. POTASSIUM [Concomitant]
  3. REVATIO [Suspect]
     Route: 048
  4. ALLOPURINOL [Suspect]
  5. WARFARIN SODIUM [Suspect]

REACTIONS (8)
  - EPISTAXIS [None]
  - NAUSEA [None]
  - CARPAL TUNNEL SYNDROME [None]
  - DYSPNOEA [None]
  - DYSGEUSIA [None]
  - MEDICATION ERROR [None]
  - GOUT [None]
  - PARAESTHESIA [None]
